FAERS Safety Report 9742942 (Version 2)
Quarter: 2013Q4

REPORT INFORMATION
  Report Type: Spontaneous
  Country: US (occurrence: US)
  Receive Date: 20131210
  Receipt Date: 20131210
  Transmission Date: 20140711
  Serious: No
  Sender: FDA-Public Use
  Company Number: US-TEVA-410980USA

PATIENT
  Age: 77 Year
  Sex: 0
  Weight: 53.57 kg

DRUGS (14)
  1. BUDESONIDE [Suspect]
     Route: 055
  2. BROVANA [Suspect]
     Dosage: DAILY
     Route: 048
  3. PROAIR HFA [Suspect]
     Dosage: 2 PUFFS 4 TIMES PER DAY
     Route: 055
  4. ZYRTEC [Suspect]
     Dosage: 10 MILLIGRAM DAILY;
     Route: 048
  5. BROVANA [Suspect]
  6. AMBIEN [Concomitant]
     Dosage: 1TAB HS
     Route: 048
  7. B12 [Concomitant]
     Route: 048
  8. COQ 10 [Concomitant]
     Route: 048
  9. ELAVIL [Concomitant]
     Dosage: 30 MILLIGRAM DAILY; HS
  10. GLUCOSOMINE [Concomitant]
     Route: 048
  11. MAGNESIUM [Concomitant]
     Dosage: 200 MILLIGRAM DAILY;
     Route: 048
  12. OCUVITE [Concomitant]
     Route: 048
  13. PREDNISONE [Concomitant]
     Dosage: 10 MILLIGRAM DAILY; AM
     Route: 048
  14. VENTOLIN [Concomitant]
     Dosage: 2 PUFFS INHALE THREE TIMES PER DAY
     Route: 055

REACTIONS (10)
  - Fungal infection [Unknown]
  - Hypersensitivity [Unknown]
  - Skin exfoliation [Not Recovered/Not Resolved]
  - Drug ineffective [Unknown]
  - Rash generalised [Unknown]
  - Swelling [Not Recovered/Not Resolved]
  - Dyspnoea [Not Recovered/Not Resolved]
  - Anxiety [Not Recovered/Not Resolved]
  - Chest discomfort [Unknown]
  - Swelling face [Unknown]
